FAERS Safety Report 8446503-4 (Version None)
Quarter: 2012Q2

REPORT INFORMATION
  Report Type: 
  Country: None (occurrence: None)
  Receive Date: 20120618
  Receipt Date: 20120427
  Transmission Date: 20120825
  Serious: No
  Sender: FDA-Public Use
  Company Number: US-TEVA-335878USA

PATIENT
  Sex: Female
  Weight: 49.94 kg

DRUGS (8)
  1. ACTIQ [Suspect]
     Indication: ARTHRALGIA
     Route: 002
     Dates: start: 20000101
  2. OXYCODONE HCL [Concomitant]
     Indication: ARTHRALGIA
     Dosage: 45 MILLIGRAM;
     Route: 048
  3. LEVORPHANOL TARTRATE [Concomitant]
     Indication: ARTHRALGIA
     Route: 048
  4. ONDANSETRON [Concomitant]
     Indication: NAUSEA
     Route: 048
  5. DIAZEPAM [Concomitant]
     Indication: POST-TRAUMATIC STRESS DISORDER
     Route: 048
  6. METHYLPHENIDATE HCL [Concomitant]
     Indication: POOR QUALITY SLEEP
     Dosage: 30 MILLIGRAM;
     Route: 048
     Dates: start: 20110101
  7. BUPROPION HCL [Concomitant]
     Indication: DEPRESSION
     Dosage: 150 MILLIGRAM;
     Route: 048
  8. LEVOTHYROXINE SODIUM [Concomitant]
     Indication: THYROID DISORDER
     Dosage: .15 MILLIGRAM;
     Route: 048

REACTIONS (7)
  - DENTAL IMPLANTATION [None]
  - SOMNOLENCE [None]
  - TOOTH REPAIR [None]
  - DENTAL CARIES [None]
  - ENDODONTIC PROCEDURE [None]
  - IMPAIRED WORK ABILITY [None]
  - OFF LABEL USE [None]
